FAERS Safety Report 5313187-3 (Version None)
Quarter: 2007Q2

REPORT INFORMATION
  Report Type: 
  Country: None (occurrence: None)
  Receive Date: 20070424
  Receipt Date: 20070411
  Transmission Date: 20071010
  Serious: Yes (Hospitalization)
  Sender: FDA-Public Use
  Company Number: 2007AL001453

PATIENT
  Age: 75 Year
  Sex: Male

DRUGS (8)
  1. SPIRONOLACTONE [Suspect]
     Dosage: 25 MG; QD; PO
     Route: 048
     Dates: end: 20070329
  2. BUMETANIDE [Concomitant]
  3. RAMIPRIL [Concomitant]
  4. ACETYLSALICYLIC ACID SRT [Concomitant]
  5. BISOPROLOL [Concomitant]
  6. SENNA GLYCOSIDES, COMBINATIONS [Concomitant]
  7. LOPERAMIDE HCL [Concomitant]
  8. INSULIN MIXTARD [Concomitant]

REACTIONS (1)
  - HYPERKALAEMIA [None]
